FAERS Safety Report 4629336-6 (Version None)
Quarter: 2005Q2

REPORT INFORMATION
  Report Type: 
  Country: None (occurrence: None)
  Receive Date: 20050404
  Receipt Date: 20050323
  Transmission Date: 20051028
  Serious: No
  Sender: FDA-Public Use
  Company Number: B0375964A

PATIENT
  Age: 52 Year
  Sex: Female

DRUGS (4)
  1. CEFAZOLIN [Suspect]
  2. REMIFENTANIL HCL [Concomitant]
  3. PROPOFOL [Concomitant]
  4. VECURONIUM BROMIDE [Concomitant]

REACTIONS (2)
  - ANAPHYLACTIC REACTION [None]
  - FIBRINOLYSIS [None]
